FAERS Safety Report 7436034-2 (Version None)
Quarter: 2011Q2

REPORT INFORMATION
  Report Type: 
  Country: None (occurrence: None)
  Receive Date: 20110425
  Receipt Date: 20091122
  Transmission Date: 20111010
  Serious: Yes (Death, Other)
  Sender: FDA-Public Use
  Company Number: US-BAYER-200940327NA

PATIENT
  Age: 67 Year
  Sex: Female

DRUGS (16)
  1. OMEPRAZOLE [Concomitant]
     Dosage: UNK
     Dates: start: 20050815
  2. PLAVIX [Concomitant]
     Dosage: UNK
     Dates: start: 20050815
  3. METOCLOPRAMIDE [Concomitant]
     Dosage: UNK
     Dates: start: 20050820
  4. NITROGLYCERIN [Concomitant]
     Dosage: UNK
     Dates: start: 20050817
  5. ISOSORBIDE MONONITRATE [Concomitant]
     Dosage: UNK
     Dates: start: 20050819
  6. METOPROLOL [Concomitant]
     Dosage: UNK
     Dates: start: 20050815
  7. NABUMETONE [Concomitant]
     Dosage: UNK
     Dates: start: 20050820
  8. TRASYLOL [Suspect]
     Indication: CORONARY ARTERY BYPASS
     Dosage: UNK
     Route: 042
     Dates: start: 20050928
  9. NORVASC [Concomitant]
     Dosage: UNK
     Dates: start: 20050815
  10. LOVASTATIN [Concomitant]
     Dosage: UNK
     Dates: start: 20050820
  11. DILANTIN [Concomitant]
     Dosage: UNK
     Dates: start: 20050204
  12. LISINOPRIL [Concomitant]
     Dosage: UNK
     Dates: start: 20050615
  13. NOVOLIN R [Concomitant]
     Dosage: UNK
     Dates: start: 20050714
  14. GLIPIZIDE [Concomitant]
     Dosage: UNK
     Dates: start: 20050714
  15. ATENOLOL [Concomitant]
     Dosage: UNK
     Dates: start: 20050811
  16. LIPITOR [Concomitant]
     Dosage: UNK
     Dates: start: 20050203

REACTIONS (13)
  - DEATH [None]
  - MULTI-ORGAN FAILURE [None]
  - RENAL INJURY [None]
  - ANHEDONIA [None]
  - EMOTIONAL DISTRESS [None]
  - STRESS [None]
  - ANXIETY [None]
  - INJURY [None]
  - FEAR [None]
  - RENAL IMPAIRMENT [None]
  - RENAL FAILURE [None]
  - PAIN [None]
  - UNEVALUABLE EVENT [None]
